FAERS Safety Report 13172228 (Version 2)
Quarter: 2017Q1

REPORT INFORMATION
  Report Type: Spontaneous
  Country: US (occurrence: US)
  Receive Date: 20170201
  Receipt Date: 20170204
  Transmission Date: 20170428
  Serious: No
  Sender: FDA-Public Use
  Company Number: US-TEVA-728300ACC

PATIENT
  Age: 25 Year
  Sex: Female
  Weight: 97.61 kg

DRUGS (1)
  1. PLAN B ONE-STEP [Suspect]
     Active Substance: LEVONORGESTREL
     Dates: start: 20170102, end: 20170102

REACTIONS (4)
  - Breast tenderness [Recovered/Resolved]
  - Abdominal discomfort [Recovered/Resolved]
  - Faeces discoloured [Not Recovered/Not Resolved]
  - Dysmenorrhoea [Not Recovered/Not Resolved]

NARRATIVE: CASE EVENT DATE: 20170102
